FAERS Safety Report 7022127-0 (Version None)
Quarter: 2010Q3

REPORT INFORMATION
  Report Type: 
  Country: None (occurrence: None)
  Receive Date: 20100930
  Receipt Date: 20100929
  Transmission Date: 20110219
  Serious: Yes (Other)
  Sender: FDA-Public Use
  Company Number: GR-BRISTOL-MYERS SQUIBB COMPANY-15195167

PATIENT
  Age: 12 Month
  Sex: Male

DRUGS (1)
  1. PROCEF POWDER FOR SUSP 250 MG/5 ML [Suspect]
     Indication: UPPER RESPIRATORY TRACT INFECTION
     Dosage: 1 DF= DAILY DOSE OF 3ML/12 HOURS.
     Route: 048
     Dates: start: 20100713, end: 20100714

REACTIONS (2)
  - PROTHROMBIN TIME PROLONGED [None]
  - PURPURA [None]
